FAERS Safety Report 5663819-5 (Version None)
Quarter: 2008Q1

REPORT INFORMATION
  Report Type: 
  Country: None (occurrence: None)
  Receive Date: 20080307
  Receipt Date: 20080226
  Transmission Date: 20080703
  Serious: Yes (Hospitalization)
  Sender: FDA-Public Use
  Company Number: RENA-1000043

PATIENT
  Age: 50 Year
  Sex: Female

DRUGS (4)
  1. RENAGEL [Suspect]
     Indication: HYPERPHOSPHATAEMIA
     Dosage: 2X3 TAB, ORAL
     Route: 048
     Dates: start: 20080115
  2. PEPSAMAR (ALUMINIUM HYDROXIDE) [Concomitant]
  3. INSULIN (INSULIN HUMAN) [Concomitant]
  4. ACE INHIBITOR NOS [Concomitant]

REACTIONS (2)
  - MYALGIA [None]
  - VIRAL UPPER RESPIRATORY TRACT INFECTION [None]
